FAERS Safety Report 6083256-1 (Version None)
Quarter: 2009Q1

REPORT INFORMATION
  Report Type: 
  Country: None (occurrence: None)
  Receive Date: 20090213
  Receipt Date: 20090213
  Transmission Date: 20090719
  Serious: Yes (Death)
  Sender: FDA-Public Use
  Company Number: None

PATIENT
  Sex: Male

DRUGS (3)
  1. CLOFARABINE [Suspect]
     Indication: STEM CELL TRANSPLANT
     Dosage: 76MG DAILY IV DRIP
     Route: 041
     Dates: start: 20080918, end: 20080922
  2. CAMPATH [Suspect]
     Dosage: 20 MG DAILY IV DRIP
     Route: 041
     Dates: start: 20080923, end: 20080923
  3. MELPHALAN [Suspect]
     Dosage: 266 MG DAILY IV DRIP
     Route: 041

REACTIONS (10)
  - CEREBRAL ATROPHY [None]
  - EMPHYSEMA [None]
  - GENERAL PHYSICAL HEALTH DETERIORATION [None]
  - NASAL ASPIRATION [None]
  - PARAINFLUENZAE VIRUS INFECTION [None]
  - REFUSAL OF TREATMENT BY RELATIVE [None]
  - RESPIRATORY SYNCYTIAL VIRUS INFECTION [None]
  - SINUS DISORDER [None]
  - SINUSITIS [None]
  - UNRESPONSIVE TO STIMULI [None]
